FAERS Safety Report 6164630-1 (Version None)
Quarter: 2009Q2

REPORT INFORMATION
  Report Type: 
  Country: None (occurrence: None)
  Receive Date: 20090423
  Receipt Date: 20090409
  Transmission Date: 20091009
  Serious: Yes (Hospitalization)
  Sender: FDA-Public Use
  Company Number: CA-BAYER-CA-2005-017506

PATIENT
  Age: 60 Year
  Sex: Female

DRUGS (6)
  1. BETASERON [Suspect]
     Indication: MULTIPLE SCLEROSIS
     Dosage: TOTAL DAILY DOSE: 8 MIU
     Route: 058
     Dates: start: 19981201, end: 20090329
  2. BETASERON [Suspect]
     Dosage: AS USED: 8 MIU
     Route: 058
     Dates: start: 20090329, end: 20090404
  3. BETASERON [Suspect]
     Dosage: TOTAL DAILY DOSE: 8 MIU
     Route: 058
  4. XANAX [Concomitant]
     Dosage: UNIT DOSE: 0.5 MG
  5. NOVASEN [Concomitant]
     Dosage: 325 MG, UNK
  6. ATARAX [Concomitant]
     Dosage: 25 MG, UNK

REACTIONS (4)
  - CONFUSIONAL STATE [None]
  - FALL [None]
  - HEAD INJURY [None]
  - MULTIPLE SCLEROSIS RELAPSE [None]
